FAERS Safety Report 5828061-3 (Version None)
Quarter: 2008Q3

REPORT INFORMATION
  Report Type: 
  Country: None (occurrence: None)
  Receive Date: 20080730
  Receipt Date: 20080408
  Transmission Date: 20090109
  Serious: No
  Sender: FDA-Public Use
  Company Number: A0721630A

PATIENT
  Sex: Female

DRUGS (1)
  1. ZANTAC [Suspect]

REACTIONS (2)
  - EAR DISCOMFORT [None]
  - MUSCLE TIGHTNESS [None]
